FAERS Safety Report 8321751-2 (Version None)
Quarter: 2012Q2

REPORT INFORMATION
  Report Type: 
  Country: None (occurrence: None)
  Receive Date: 20120430
  Receipt Date: 20091113
  Transmission Date: 20120825
  Serious: No
  Sender: FDA-Public Use
  Company Number: US-TEVA-2009020822

PATIENT
  Sex: Male
  Weight: 81.72 kg

DRUGS (12)
  1. SPIRIVA [Concomitant]
     Dates: start: 20070101
  2. TOPROL-XL [Concomitant]
     Dates: start: 20080101
  3. ASPIRIN [Concomitant]
     Dates: start: 20010101
  4. XOPENEX [Concomitant]
     Dates: start: 20070101
  5. CRESTOR [Concomitant]
     Dates: start: 20080101
  6. LANOXIN [Concomitant]
     Dates: start: 20070101
  7. NUVIGIL [Suspect]
     Indication: SLEEP APNOEA SYNDROME
     Dosage: 150 MILLIGRAM;
     Route: 048
     Dates: start: 20091013, end: 20091104
  8. REQUIP [Concomitant]
     Dates: start: 20060101
  9. ADVAIR DISKUS 100/50 [Concomitant]
     Dates: start: 20070101
  10. ARAVA [Concomitant]
     Dates: start: 20030101
  11. LASIX [Concomitant]
     Dates: start: 20060101
  12. PREDNISONE [Concomitant]
     Dates: start: 20030101

REACTIONS (2)
  - TREMOR [None]
  - ASTERIXIS [None]
